FAERS Safety Report 9286745 (Version 1)
Quarter: 2012Q4

REPORT INFORMATION
  Report Type: Spontaneous
  Country: US (occurrence: None)
  Receive Date: 20120912
  Receipt Date: 20120912
  Transmission Date: 20130627
  Serious: Yes (Other)
  Sender: FDA-Public Use
  Company Number: US-20120035

PATIENT
  Age: 64 Year
  Sex: Male
  Weight: 72 kg

DRUGS (1)
  1. OXILAN [Suspect]
     Indication: THROMBECTOMY
     Dates: start: 20120612, end: 20120612

REACTIONS (4)
  - Feeling abnormal [None]
  - Dyspnoea [None]
  - Tremor [None]
  - Respiratory rate decreased [None]
